FAERS Safety Report 9970188 (Version 2)
Quarter: 2014Q2

REPORT INFORMATION
  Report Type: Report from Study
  Country: US (occurrence: US)
  Receive Date: 20140306
  Receipt Date: 20140509
  Transmission Date: 20141212
  Serious: Yes (Other)
  Sender: FDA-Public Use
  Company Number: US-ASTELLAS-2014US002287

PATIENT
  Age: 69 Year
  Sex: Female

DRUGS (22)
  1. ERLOTINIB [Suspect]
     Indication: HEPATIC CANCER
     Route: 048
     Dates: start: 2013, end: 201402
  2. ERLOTINIB [Suspect]
     Indication: BILE DUCT CANCER STAGE IV
     Route: 065
     Dates: start: 201404
  3. XELODA [Suspect]
     Indication: BILE DUCT CANCER STAGE IV
     Dosage: 500 MG, 5 IN 1 DAY(2 IN AM, 3 IN PM, 2 WEEKS ON)
     Route: 065
     Dates: start: 201209, end: 201301
  4. XELODA [Suspect]
     Dosage: 500 MG,  5 IN 1 DAY(2 IN AM, 3 IN PM, 2 WEEKS ON
     Dates: start: 201302, end: 201402
  5. XELODA [Suspect]
     Dosage: 500 MG,  5 IN 1 DAY(2 IN AM, 3 IN PM, 2 WEEKS ON
     Route: 065
     Dates: start: 201404
  6. INSULIN [Concomitant]
     Indication: DIABETES MELLITUS
     Route: 065
     Dates: start: 2012
  7. GEMCITABINE                        /01215702/ [Concomitant]
     Indication: BILE DUCT CANCER STAGE IV
     Dosage: 1250 MG, ONCE WEEKLY(FOR 3 WEEKS, 1 WEEK OFF)
     Route: 065
     Dates: start: 201209, end: 201301
  8. GEMCITABINE                        /01215702/ [Concomitant]
     Dosage: 1250 MG, ONCE WEEKLY(FOR 3 WEEKS, 1 WEEK OFF)
     Route: 065
     Dates: start: 201302, end: 20140103
  9. GEMCITABINE                        /01215702/ [Concomitant]
     Dosage: 1250 MG, ONCE WEEKLY(FOR 3 WEEKS, 1 WEEK OFF)
     Route: 065
     Dates: start: 20140418
  10. ALOXI [Concomitant]
     Indication: NAUSEA
     Dosage: UNK UNK, ONCE WEEKLY
     Route: 065
     Dates: start: 201209, end: 201301
  11. ALOXI [Concomitant]
     Dosage: UNK, ONCE WEEKLY
     Dates: start: 201302, end: 20140103
  12. ALOXI [Concomitant]
     Dosage: UNK, ONCE WEEKLY
     Route: 065
     Dates: start: 20140418
  13. BENADRYL                           /00000402/ [Concomitant]
     Indication: HYPERSENSITIVITY
     Dosage: UNK UNK, UNKNOWN FREQ.
     Route: 065
  14. ALLEGRA [Concomitant]
     Indication: HYPERSENSITIVITY
     Dosage: UNK UNK, UNKNOWN FREQ.
     Route: 065
  15. JANUVIA [Concomitant]
     Indication: DIABETES MELLITUS
     Dosage: UNK UNK, UNKNOWN FREQ.
     Route: 065
  16. JANUMET [Concomitant]
     Indication: DIABETES MELLITUS
     Dosage: UNK UNK, UNKNOWN FREQ.
     Route: 065
  17. NEXIUM                             /01479302/ [Concomitant]
     Indication: GASTROOESOPHAGEAL REFLUX DISEASE
     Dosage: UNK UNK, UNKNOWN FREQ.
     Route: 065
  18. CELEBREX [Concomitant]
     Indication: ARTHRITIS
     Dosage: UNK UNK, UNKNOWN FREQ.
     Route: 065
     Dates: start: 2013
  19. IBUPROFEN [Concomitant]
     Indication: ARTHRITIS
     Dosage: UNK UNK, AS NEEDED
     Route: 065
  20. ROBAXIN [Concomitant]
     Indication: ARTHRITIS
     Dosage: UNK UNK, UNKNOWN FREQ.
     Route: 065
  21. PLAVIX [Concomitant]
     Indication: PRODUCT USED FOR UNKNOWN INDICATION
     Dosage: UNK UNK, UNKNOWN FREQ.
     Route: 065
     Dates: start: 2014, end: 20140430
  22. BABY ASPIRIN [Concomitant]
     Indication: PRODUCT USED FOR UNKNOWN INDICATION
     Dosage: UNK UNK, UNKNOWN FREQ.
     Route: 065
     Dates: start: 2014

REACTIONS (17)
  - Protein total decreased [Unknown]
  - Skin discolouration [Not Recovered/Not Resolved]
  - Full blood count decreased [Not Recovered/Not Resolved]
  - White blood cell count decreased [Not Recovered/Not Resolved]
  - Metastases to liver [Not Recovered/Not Resolved]
  - Neoplasm [Unknown]
  - Visual impairment [Unknown]
  - Prealbumin decreased [Unknown]
  - Venous occlusion [Recovered/Resolved]
  - Cardiovascular disorder [Recovered/Resolved]
  - Epistaxis [Not Recovered/Not Resolved]
  - Ephelides [Unknown]
  - Diarrhoea [Unknown]
  - Nausea [Recovered/Resolved]
  - Platelet count decreased [Not Recovered/Not Resolved]
  - Vomiting [Recovered/Resolved]
  - Off label use [Unknown]
